FAERS Safety Report 6187553-0 (Version None)
Quarter: 2009Q2

REPORT INFORMATION
  Report Type: 
  Country: None (occurrence: None)
  Receive Date: 20090508
  Receipt Date: 20090427
  Transmission Date: 20091009
  Serious: Yes (Life-Threatening)
  Sender: FDA-Public Use
  Company Number: GXKR2009GB05117

PATIENT
  Age: 57 Year
  Sex: Female
  Weight: 65 kg

DRUGS (9)
  1. BENDROFLUMETHIAZIDE (NGX)(BENDROFLUMETHIAZIDE) UNKNOWN [Suspect]
     Indication: HYPERTENSION
     Dosage: 2.5 MG, QD, ORAL
     Route: 048
     Dates: start: 20050101, end: 20090205
  2. CITALOPRAM HYDROBROMIDE [Suspect]
     Indication: DEPRESSION
     Dosage: 20 MG, ORAL
     Route: 048
     Dates: start: 20090202, end: 20090208
  3. METRONIDAZOLE [Suspect]
     Indication: PROPHYLAXIS
     Dosage: 200 MG, TID, ORAL
     Route: 048
     Dates: start: 20090202, end: 20090205
  4. RAMIPRIL [Suspect]
     Indication: HYPERTENSION
     Dosage: 2.5 MG, QD, ORAL
     Route: 048
     Dates: start: 20060101, end: 20090205
  5. GARLIC OIL ESSENTIAL [Concomitant]
  6. MAGNESIUM (MAGNESIUM) [Concomitant]
  7. MENOPACE (MINERALS NOS, VITAMINS NOS) [Concomitant]
  8. ACETAMINOPHEN [Concomitant]
  9. OREGANO OIL [Concomitant]

REACTIONS (8)
  - CENTRAL PONTINE MYELINOLYSIS [None]
  - CONVULSION [None]
  - DRUG INTERACTION [None]
  - FEELING HOT [None]
  - HYPONATRAEMIA [None]
  - MEMORY IMPAIRMENT [None]
  - THIRST [None]
  - VOMITING [None]
